FAERS Safety Report 25264949 (Version 3)
Quarter: 2025Q2

REPORT INFORMATION
  Report Type: Spontaneous
  Country: FR (occurrence: FR)
  Receive Date: 20250502
  Receipt Date: 20250515
  Transmission Date: 20250717
  Serious: Yes (Life-Threatening, Hospitalization)
  Sender: NOVARTIS
  Company Number: FR-002147023-NVSC2025FR069311

PATIENT
  Age: 38 Year
  Sex: Male
  Weight: 60 kg

DRUGS (9)
  1. CYCLOSPORINE [Suspect]
     Active Substance: CYCLOSPORINE
     Indication: Product used for unknown indication
     Route: 042
     Dates: start: 20210711, end: 20220602
  2. MYCOPHENOLATE MOFETIL [Suspect]
     Active Substance: MYCOPHENOLATE MOFETIL
     Indication: Product used for unknown indication
     Route: 048
     Dates: start: 20210711, end: 20210810
  3. FLUDARABINE [Suspect]
     Active Substance: FLUDARABINE PHOSPHATE
     Indication: Product used for unknown indication
     Route: 042
     Dates: start: 20210702, end: 20210704
  4. CYCLOPHOSPHAMIDE [Suspect]
     Active Substance: CYCLOPHOSPHAMIDE
     Indication: Product used for unknown indication
     Route: 042
     Dates: start: 20210708, end: 20210710
  5. PREDNISONE [Concomitant]
     Active Substance: PREDNISONE
     Indication: Product used for unknown indication
     Route: 048
     Dates: start: 20211215
  6. THIOTEPA [Concomitant]
     Active Substance: THIOTEPA
     Indication: Product used for unknown indication
     Route: 042
  7. BUSULFAN [Concomitant]
     Active Substance: BUSULFAN
     Indication: Product used for unknown indication
     Route: 042
  8. Immunoglobulin [Concomitant]
     Indication: Product used for unknown indication
     Route: 042
  9. LEUCOVORIN CALCIUM [Concomitant]
     Active Substance: LEUCOVORIN CALCIUM
     Indication: Product used for unknown indication
     Route: 048

REACTIONS (5)
  - Pneumocystis jirovecii pneumonia [Recovered/Resolved]
  - Dyspnoea [Recovered/Resolved]
  - Cough [Recovered/Resolved]
  - Asthenia [Unknown]
  - Chills [Unknown]

NARRATIVE: CASE EVENT DATE: 20230208
